FAERS Safety Report 4733657-6 (Version None)
Quarter: 2005Q3

REPORT INFORMATION
  Report Type: 
  Country: None (occurrence: None)
  Receive Date: 20050729
  Receipt Date: 20050721
  Transmission Date: 20060218
  Serious: Yes (Hospitalization)
  Sender: FDA-Public Use
  Company Number: 2005066243

PATIENT
  Age: 79 Year
  Sex: Female

DRUGS (3)
  1. LIPITOR [Suspect]
     Indication: HYPERCHOLESTEROLAEMIA
     Dosage: 5 MG (1 IN 1 D), ORAL
     Route: 048
     Dates: start: 20050402, end: 20050417
  2. ALTAT (ROXATIDINE ACETATE HYDRCHLORIDE) [Concomitant]
  3. ULCERMIN (SUCRALFATE) [Concomitant]

REACTIONS (7)
  - DECREASED APPETITE [None]
  - DEHYDRATION [None]
  - DRUG HYPERSENSITIVITY [None]
  - ECZEMA [None]
  - GRANULOCYTOPENIA [None]
  - PYREXIA [None]
  - STOMACH DISCOMFORT [None]
